FAERS Safety Report 12902269 (Version 2)
Quarter: 2016Q4

REPORT INFORMATION
  Report Type: Spontaneous
  Country: US (occurrence: US)
  Receive Date: 20161102
  Receipt Date: 20161108
  Transmission Date: 20170207
  Serious: Yes (Other)
  Sender: FDA-Public Use
  Company Number: US-BAXTER-2016BAX052943

PATIENT
  Sex: Female

DRUGS (2)
  1. DIANEAL LOW CALCIUM PERITONEAL DIALYSIS SOLUTION WITH DEXTROSE [Suspect]
     Active Substance: CALCIUM CHLORIDE\DEXTROSE\MAGNESIUM CHLORIDE\SODIUM CHLORIDE\SODIUM LACTATE
     Indication: PERITONEAL DIALYSIS
     Dosage: 4 CYCLES AS NEEDED
     Route: 033
     Dates: start: 201602, end: 20161020
  2. DIANEAL LOW CALCIUM PERITONEAL DIALYSIS SOLUTION WITH DEXTROSE [Suspect]
     Active Substance: CALCIUM CHLORIDE\DEXTROSE\MAGNESIUM CHLORIDE\SODIUM CHLORIDE\SODIUM LACTATE
     Indication: PERITONEAL DIALYSIS
     Dosage: 4 CYCLES AS NEEDED
     Route: 033
     Dates: start: 201602, end: 20161020

REACTIONS (6)
  - Peritonitis bacterial [Unknown]
  - Device related infection [Unknown]
  - Gastrointestinal disorder [Unknown]
  - Bacterial infection [Unknown]
  - Dehydration [Unknown]
  - Peritonitis [Unknown]

NARRATIVE: CASE EVENT DATE: 20160918
